FAERS Safety Report 5387248-7 (Version None)
Quarter: 2007Q3

REPORT INFORMATION
  Report Type: 
  Country: None (occurrence: None)
  Receive Date: 20070716
  Receipt Date: 20070705
  Transmission Date: 20080115
  Serious: Yes (Hospitalization)
  Sender: FDA-Public Use
  Company Number: JP-JNJFOC-20040306286

PATIENT
  Sex: Female
  Weight: 58.7 kg

DRUGS (11)
  1. REMICADE [Suspect]
     Route: 041
     Dates: start: 20031212
  2. REMICADE [Suspect]
     Route: 041
     Dates: start: 20031212
  3. REMICADE [Suspect]
     Indication: RHEUMATOID ARTHRITIS
     Route: 041
     Dates: start: 20031212
  4. STEROIDS [Suspect]
     Indication: DRUG USE FOR UNKNOWN INDICATION
     Route: 065
  5. RHEUMATREX [Concomitant]
     Route: 048
  6. RHEUMATREX [Concomitant]
     Indication: RHEUMATOID ARTHRITIS
     Route: 048
  7. PREDONINE [Concomitant]
     Indication: RHEUMATOID ARTHRITIS
     Route: 048
  8. ROCALTROL [Concomitant]
     Indication: RHEUMATOID ARTHRITIS
     Route: 048
  9. FOLACIN [Concomitant]
     Route: 048
  10. RISEDRONATE SODIUM [Concomitant]
     Route: 048
  11. NEORAL [Concomitant]
     Route: 048

REACTIONS (2)
  - DRUG INEFFECTIVE [None]
  - FRACTURE [None]
